FAERS Safety Report 8292515-3 (Version None)
Quarter: 2012Q2

REPORT INFORMATION
  Report Type: 
  Country: None (occurrence: None)
  Receive Date: 20120417
  Receipt Date: 20110523
  Transmission Date: 20120825
  Serious: No
  Sender: FDA-Public Use
  Company Number: US-ASTRAZENECA-2011SE31300

PATIENT
  Age: 75 Year
  Sex: Female
  Weight: 69.9 kg

DRUGS (12)
  1. NEXIUM [Suspect]
     Indication: GASTROOESOPHAGEAL REFLUX DISEASE
     Route: 048
  2. NEXIUM [Suspect]
     Route: 048
  3. JANUMET [Concomitant]
     Indication: DIABETES MELLITUS
  4. NEXIUM [Suspect]
     Indication: HIATUS HERNIA
     Route: 048
  5. ALTACE [Concomitant]
     Indication: HYPERTENSION
  6. GLYBURIDE [Concomitant]
     Indication: DIABETES MELLITUS
  7. HYDRALAZINE HCL [Concomitant]
     Indication: HYPERTENSION
  8. NEXIUM [Suspect]
     Route: 048
  9. HYDROCHLOROTHIAZIDE [Concomitant]
  10. NEXIUM [Suspect]
     Dosage: 40 MG  EVERY 2-3 DAYS
     Route: 048
  11. NEXIUM [Suspect]
     Dosage: 40 MG  EVERY 2-3 DAYS
     Route: 048
  12. METOPROLOL TARTRATE [Concomitant]
     Indication: HYPERTENSION

REACTIONS (3)
  - GASTROINTESTINAL DISORDER [None]
  - BLOOD PRESSURE ABNORMAL [None]
  - WEIGHT INCREASED [None]
